FAERS Safety Report 6450035-2 (Version None)
Quarter: 2009Q4

REPORT INFORMATION
  Report Type: 
  Country: None (occurrence: None)
  Receive Date: 20091123
  Receipt Date: 20091113
  Transmission Date: 20100525
  Serious: Yes (Hospitalization, Other)
  Sender: FDA-Public Use
  Company Number: JP-JNJFOC-20090900215

PATIENT
  Sex: Male

DRUGS (14)
  1. RISPERDAL [Suspect]
     Route: 048
     Dates: start: 20090515, end: 20090826
  2. RISPERDAL [Suspect]
     Indication: DELIRIUM
     Route: 048
     Dates: start: 20090515, end: 20090826
  3. UNKNOWN MEDICATION [Concomitant]
  4. URIEF [Concomitant]
     Route: 048
  5. AMARYL [Concomitant]
     Indication: DIABETES MELLITUS
     Route: 048
  6. ASPIRIN [Concomitant]
     Indication: CEREBRAL INFARCTION
     Route: 048
  7. MELBIN [Concomitant]
     Indication: DIABETES MELLITUS
     Route: 048
  8. TIZANIDINE HYDROCHLORIDE [Concomitant]
     Route: 048
  9. DIOVAN [Concomitant]
     Route: 048
  10. AMLODIPINE [Concomitant]
     Route: 048
  11. CHLORPHENIRAMINE MALEATE [Concomitant]
     Route: 048
  12. MUCODYNE [Concomitant]
     Route: 048
  13. SENNOSIDE [Concomitant]
     Route: 048
  14. MAGNESIUM OXIDE [Concomitant]
     Route: 048

REACTIONS (5)
  - GRANULOCYTOPENIA [None]
  - INFECTION [None]
  - LEUKOPENIA [None]
  - OFF LABEL USE [None]
  - PYREXIA [None]
